FAERS Safety Report 21914731 (Version 2)
Quarter: 2023Q1

REPORT INFORMATION
  Report Type: Spontaneous
  Country: GR (occurrence: GR)
  Receive Date: 20230126
  Receipt Date: 20230130
  Transmission Date: 20230417
  Serious: No
  Sender: FDA-Public Use
  Company Number: GR-CELLTRION INC.-2023GR001033

PATIENT

DRUGS (2)
  1. RITUXIMAB [Interacting]
     Active Substance: RITUXIMAB
     Indication: Product used for unknown indication
  2. TOZINAMERAN [Interacting]
     Active Substance: TOZINAMERAN
     Indication: COVID-19 prophylaxis

REACTIONS (2)
  - Drug interaction [Unknown]
  - SARS-CoV-2 antibody test negative [Unknown]
